FAERS Safety Report 5429979-6 (Version None)
Quarter: 2007Q3

REPORT INFORMATION
  Report Type: 
  Country: None (occurrence: None)
  Receive Date: 20070829
  Receipt Date: 20070808
  Transmission Date: 20080115
  Serious: No
  Sender: FDA-Public Use
  Company Number: US-BOEHRINGER INGELHEIM PHARMACEUTICALS, INC.-2007-BP-18775BP

PATIENT
  Age: 79 Year
  Sex: Male

DRUGS (4)
  1. FLOMAX [Suspect]
     Indication: BENIGN PROSTATIC HYPERPLASIA
     Route: 048
     Dates: start: 20070501
  2. DETROL LA [Concomitant]
  3. HTN MEDICINE [Concomitant]
  4. CATAPRES-TTS-1 [Concomitant]

REACTIONS (3)
  - PENILE OEDEMA [None]
  - RASH ERYTHEMATOUS [None]
  - TESTICULAR DISORDER [None]
